FAERS Safety Report 8924126 (Version 1)
Quarter: 2012Q4

REPORT INFORMATION
  Report Type: Spontaneous
  Country: DK (occurrence: None)
  Receive Date: 20121116
  Receipt Date: 20121116
  Transmission Date: 20130627
  Serious: Yes (Disabling)
  Sender: FDA-Public Use
  Company Number: 2012MA013372

PATIENT
  Age: 59 Year
  Sex: Female

DRUGS (9)
  1. MIRTAZAPINE [Suspect]
     Indication: DEPRESSION
  2. VENLAFAXINE [Concomitant]
  3. MIRTAZAPINE [Concomitant]
  4. SERTRALINE [Concomitant]
  5. DULOXETINE [Concomitant]
  6. FUROSEMIDE [Concomitant]
  7. DIPROBASE [Concomitant]
  8. BUMETANIDE [Concomitant]
  9. EUMOVATE [Concomitant]

REACTIONS (3)
  - Lymphoedema [None]
  - Weight increased [None]
  - Depression [None]
